FAERS Safety Report 16470380 (Version 1)
Quarter: 2019Q2

REPORT INFORMATION
  Report Type: Spontaneous
  Country: RO (occurrence: RO)
  Receive Date: 20190624
  Receipt Date: 20190624
  Transmission Date: 20190711
  Serious: Yes (Other)
  Sender: FDA-Public Use
  Company Number: RO-BAYER-2019-118289

PATIENT
  Sex: Male

DRUGS (2)
  1. NEXAVAR [Suspect]
     Active Substance: SORAFENIB
     Dosage: DAILY DOSE 600 MG
     Dates: start: 201906, end: 201906
  2. NEXAVAR [Suspect]
     Active Substance: SORAFENIB
     Dosage: DAILY DOSE 400 MG
     Dates: start: 20181026, end: 201906

REACTIONS (1)
  - Vasculitis [None]

NARRATIVE: CASE EVENT DATE: 20190607
